FAERS Safety Report 21739079 (Version 2)
Quarter: 2022Q4

REPORT INFORMATION
  Report Type: Spontaneous
  Country: US (occurrence: US)
  Receive Date: 20221216
  Receipt Date: 20221226
  Transmission Date: 20230112
  Serious: Yes (Other)
  Sender: FDA-Public Use
  Company Number: US-Accord-292169

PATIENT
  Age: 66 Year
  Sex: Female

DRUGS (5)
  1. MYCOPHENOLIC ACID [Suspect]
     Active Substance: MYCOPHENOLIC ACID
     Indication: Immunosuppression
     Dosage: TWICE PER DAY
     Dates: start: 202008, end: 202012
  2. TACROLIMUS [Suspect]
     Active Substance: TACROLIMUS
     Indication: Immunosuppression
     Dosage: TWICE PER DAY
     Dates: start: 202008, end: 202012
  3. PREDNISONE [Suspect]
     Active Substance: PREDNISONE
     Indication: Immunosuppression
     Dosage: DAILY
     Dates: start: 202008
  4. THYMOGLOBULIN [Suspect]
     Active Substance: LAPINE T-LYMPHOCYTE IMMUNE GLOBULIN
     Indication: Immunosuppressant drug therapy
     Dates: start: 202008, end: 202008
  5. METHYLPREDNISOLONE [Suspect]
     Active Substance: METHYLPREDNISOLONE
     Indication: Immunosuppressant drug therapy
     Dates: start: 202008, end: 202008

REACTIONS (4)
  - Abdominal pain [Unknown]
  - Abdominal distension [Unknown]
  - Back pain [Unknown]
  - Angiosarcoma metastatic [Recovered/Resolved]

NARRATIVE: CASE EVENT DATE: 20201101
